FAERS Safety Report 21540276 (Version 1)
Quarter: 2022Q4

REPORT INFORMATION
  Report Type: Spontaneous
  Country: BR (occurrence: None)
  Receive Date: 20221102
  Receipt Date: 20221102
  Transmission Date: 20230113
  Serious: Yes (Hospitalization)
  Sender: FDA-Public Use
  Company Number: BR-ROCHE-3207809

PATIENT
  Age: 29 Year
  Sex: Female

DRUGS (19)
  1. MYCOPHENOLATE MOFETIL [Suspect]
     Active Substance: MYCOPHENOLATE MOFETIL
     Indication: Nephrotic syndrome
     Route: 065
     Dates: start: 20190910
  2. MYCOPHENOLATE MOFETIL [Suspect]
     Active Substance: MYCOPHENOLATE MOFETIL
     Route: 065
  3. LOSARTAN [Concomitant]
     Active Substance: LOSARTAN
     Route: 065
  4. OMEPRAZOLE [Concomitant]
     Active Substance: OMEPRAZOLE
     Route: 065
  5. CALCIUM CARBONATE [Concomitant]
     Active Substance: CALCIUM CARBONATE
     Dosage: 1250 (500) , FREQUENCY WAS NOT REPORTED
  6. CHOLECALCIFEROL [Concomitant]
     Active Substance: CHOLECALCIFEROL
  7. DIMENHYDRINATE\PYRIDOXINE HYDROCHLORIDE [Concomitant]
     Active Substance: DIMENHYDRINATE\PYRIDOXINE HYDROCHLORIDE
     Dosage: DOSE WAS NOT REPORTED
     Route: 065
  8. PROMETHAZINE [Concomitant]
     Active Substance: PROMETHAZINE HYDROCHLORIDE
     Route: 065
  9. FLUNITRAZEPAM [Concomitant]
     Active Substance: FLUNITRAZEPAM
     Route: 065
  10. MAGNESIUM [Concomitant]
     Active Substance: MAGNESIUM
     Dosage: DOSE WAS NOT REPORTED
     Route: 065
  11. FLUVOXAMINE [Concomitant]
     Active Substance: FLUVOXAMINE
     Indication: Depression
     Route: 065
  12. FLUVOXAMINE [Concomitant]
     Active Substance: FLUVOXAMINE
     Indication: Depression
  13. FLUVOXAMINE [Concomitant]
     Active Substance: FLUVOXAMINE
     Indication: Psychotic symptom
  14. CLONAZEPAM [Concomitant]
     Active Substance: CLONAZEPAM
     Indication: Depression
     Route: 065
  15. CLONAZEPAM [Concomitant]
     Active Substance: CLONAZEPAM
     Indication: Depression
  16. CLONAZEPAM [Concomitant]
     Active Substance: CLONAZEPAM
     Indication: Psychotic symptom
  17. FLUNITRAZEPAM [Concomitant]
     Active Substance: FLUNITRAZEPAM
     Indication: Depression
     Route: 065
  18. FLUNITRAZEPAM [Concomitant]
     Active Substance: FLUNITRAZEPAM
     Indication: Depression
  19. FLUNITRAZEPAM [Concomitant]
     Active Substance: FLUNITRAZEPAM
     Indication: Psychotic symptom

REACTIONS (6)
  - Peripheral swelling [Unknown]
  - Urinary tract infection [Unknown]
  - Blood creatinine abnormal [Unknown]
  - Dyspnoea [Unknown]
  - Painful respiration [Unknown]
  - Off label use [Unknown]

NARRATIVE: CASE EVENT DATE: 20220924
